FAERS Safety Report 5343584-1 (Version None)
Quarter: 2007Q2

REPORT INFORMATION
  Report Type: 
  Country: None (occurrence: None)
  Receive Date: 20070416
  Receipt Date: 20070129
  Transmission Date: 20071010
  Serious: No
  Sender: FDA-Public Use
  Company Number: 2007SP000319

PATIENT
  Age: 67 Year
  Sex: Female
  Weight: 108.8633 kg

DRUGS (5)
  1. LUNESTA [Suspect]
     Indication: INSOMNIA
     Dosage: ORAL
     Route: 048
     Dates: start: 20061101, end: 20061201
  2. PRILOSEC [Concomitant]
  3. LISINOPRIL [Concomitant]
  4. SYNTHROID [Concomitant]
  5. TEGASEROD MALEATE [Concomitant]

REACTIONS (1)
  - DYSGEUSIA [None]
